FAERS Safety Report 24409408 (Version 1)
Quarter: 2024Q4

REPORT INFORMATION
  Report Type: Spontaneous
  Country: US (occurrence: US)
  Receive Date: 20241008
  Receipt Date: 20241008
  Transmission Date: 20250115
  Serious: Yes (Hospitalization, Other)
  Sender: NOVO NORDISK
  Company Number: US-NOVOPROD-1294429

PATIENT
  Age: 74 Year
  Sex: Male

DRUGS (1)
  1. NOVOLOG [Suspect]
     Active Substance: INSULIN ASPART
     Indication: Type 2 diabetes mellitus
     Dosage: UNK
     Route: 058
     Dates: start: 2020

REACTIONS (5)
  - Prostatomegaly [Recovered/Resolved]
  - Sepsis [Recovered/Resolved]
  - Blood pressure abnormal [Unknown]
  - Fatigue [Unknown]
  - Blood glucose abnormal [Unknown]
